FAERS Safety Report 10153641 (Version 4)
Quarter: 2017Q4

REPORT INFORMATION
  Report Type: Report from Study
  Country: CN (occurrence: CN)
  Receive Date: 20140505
  Receipt Date: 20171210
  Transmission Date: 20180320
  Serious: Yes (Hospitalization)
  Sender: FDA-Public Use
  Company Number: PHHY2014CN053364

PATIENT
  Age: 24 Year
  Sex: Male
  Weight: 59 kg

DRUGS (3)
  1. MYFORTIC [Suspect]
     Active Substance: MYCOPHENOLATE SODIUM
     Indication: PROPHYLAXIS AGAINST TRANSPLANT REJECTION
  2. MYFORTIC [Suspect]
     Active Substance: MYCOPHENOLATE SODIUM
     Indication: RENAL TRANSPLANT
     Dosage: 1080 MG, QD
     Route: 048
     Dates: start: 20130329, end: 20131129
  3. TACROLIMUS. [Concomitant]
     Active Substance: TACROLIMUS
     Indication: TRANSPLANT REJECTION
     Dosage: 4 MG, QD
     Route: 065
     Dates: start: 20130611, end: 20131129

REACTIONS (3)
  - Urinary tract obstruction [Recovered/Resolved with Sequelae]
  - Polyomavirus-associated nephropathy [Recovered/Resolved with Sequelae]
  - Hydroureter [Unknown]

NARRATIVE: CASE EVENT DATE: 20131021
